FAERS Safety Report 4875117-8 (Version None)
Quarter: 2006Q1

REPORT INFORMATION
  Report Type: 
  Country: None (occurrence: None)
  Receive Date: 20060109
  Receipt Date: 20060105
  Transmission Date: 20060701
  Serious: Yes (Hospitalization)
  Sender: FDA-Public Use
  Company Number: CH-GLAXOSMITHKLINE-B0405714A

PATIENT
  Age: 102 Year
  Sex: Male

DRUGS (9)
  1. AUGMENTIN '125' [Suspect]
     Route: 048
     Dates: start: 20050930, end: 20051006
  2. IMODIUM [Suspect]
     Indication: DRUG USE FOR UNKNOWN INDICATION
     Route: 048
     Dates: start: 20051007, end: 20051009
  3. PANTOPRAZOLE SODIUM [Concomitant]
     Dosage: 20MG PER DAY
  4. TORSEMIDE [Concomitant]
     Dosage: 2.5MG PER DAY
     Route: 048
  5. FINASTERIDE [Concomitant]
     Route: 048
  6. TAMSULOSIN HCL [Concomitant]
     Route: 048
  7. GINKGO BILOBA [Concomitant]
     Route: 048
  8. LORAZEPAM [Concomitant]
     Dosage: 1MG PER DAY
     Route: 048
  9. DISTRANEURIN [Concomitant]
     Route: 048

REACTIONS (5)
  - ABDOMINAL DISTENSION [None]
  - DEHYDRATION [None]
  - DIARRHOEA [None]
  - ILEUS [None]
  - SOMNOLENCE [None]
